FAERS Safety Report 12719344 (Version 1)
Quarter: 2016Q3

REPORT INFORMATION
  Report Type: Spontaneous
  Country: US (occurrence: US)
  Receive Date: 20160907
  Receipt Date: 20160907
  Transmission Date: 20161109
  Serious: Yes (Other)
  Sender: FDA-Public Use
  Company Number: US-AMGEN-USASP2016117541

PATIENT
  Age: 30 Year
  Sex: Female

DRUGS (1)
  1. ENBREL [Suspect]
     Active Substance: ETANERCEPT
     Indication: RHEUMATOID ARTHRITIS
     Dosage: 50 MG, QWK
     Route: 058

REACTIONS (7)
  - Chest pain [Unknown]
  - Systemic lupus erythematosus [Unknown]
  - Headache [Unknown]
  - Pneumonia [Unknown]
  - Paraesthesia [Unknown]
  - Peripheral swelling [Unknown]
  - Nausea [Unknown]
